FAERS Safety Report 16711010 (Version 1)
Quarter: 2019Q3

REPORT INFORMATION
  Report Type: Spontaneous
  Country: US (occurrence: US)
  Receive Date: 20190816
  Receipt Date: 20190816
  Transmission Date: 20191004
  Serious: Yes (Death, Other)
  Sender: FDA-Public Use
  Company Number: US-PFIZER INC-2019351054

PATIENT
  Age: 63 Year
  Sex: Female

DRUGS (8)
  1. CARBOPLATIN. [Suspect]
     Active Substance: CARBOPLATIN
     Dosage: 652 MG, EVERY 3 WEEKS
     Route: 042
     Dates: start: 20020807, end: 20021119
  2. DOXORUBICIN HCL [Suspect]
     Active Substance: DOXORUBICIN HYDROCHLORIDE
     Indication: NON-HODGKIN^S LYMPHOMA
     Dosage: UNK
     Dates: start: 20050601
  3. DOCETAXEL. [Suspect]
     Active Substance: DOCETAXEL
     Dosage: 138 MG, UNK
     Route: 042
     Dates: start: 20020807, end: 20021119
  4. TRASTUZUMAB. [Suspect]
     Active Substance: TRASTUZUMAB
     Dosage: 154 MG, EVERY 3 WEEKS
     Route: 042
     Dates: start: 20020807, end: 20021119
  5. CYCLOPHOSPHAMIDE. [Suspect]
     Active Substance: CYCLOPHOSPHAMIDE
     Indication: NON-HODGKIN^S LYMPHOMA
     Dosage: UNK
     Dates: start: 20050601
  6. MABTHERA [Suspect]
     Active Substance: RITUXIMAB
     Indication: NON-HODGKIN^S LYMPHOMA
     Dosage: UNK
     Dates: start: 20050223
  7. VINCRISTINE SULFATE. [Suspect]
     Active Substance: VINCRISTINE SULFATE
     Indication: NON-HODGKIN^S LYMPHOMA
     Dosage: UNK
     Dates: start: 20050601
  8. ARIMIDEX [Suspect]
     Active Substance: ANASTROZOLE
     Dosage: UNK
     Dates: start: 20060201

REACTIONS (3)
  - Second primary malignancy [Fatal]
  - Myelodysplastic syndrome [Fatal]
  - Neoplasm progression [Fatal]

NARRATIVE: CASE EVENT DATE: 20080602
